FAERS Safety Report 4662202-9 (Version None)
Quarter: 2005Q2

REPORT INFORMATION
  Report Type: 
  Country: None (occurrence: None)
  Receive Date: 20050512
  Receipt Date: 20050503
  Transmission Date: 20051028
  Serious: Yes (Death)
  Sender: FDA-Public Use
  Company Number: 2005BI006600

PATIENT
  Age: 69 Year
  Sex: Male

DRUGS (10)
  1. AVONEX [Suspect]
     Indication: MULTIPLE SCLEROSIS
     Dosage: 30 UG; QW; IM
     Route: 030
     Dates: start: 20040801
  2. MIDODRINE HCL [Concomitant]
  3. DIGITALIS CAP [Concomitant]
  4. MIRALAX [Concomitant]
  5. MULTI-VITAMIN [Concomitant]
  6. CALCIUM GLUCONATE [Concomitant]
  7. ZANTAC [Concomitant]
  8. ESTER C [Concomitant]
  9. ATIVAN [Concomitant]
  10. VALIUM [Concomitant]

REACTIONS (1)
  - RESTRICTIVE PULMONARY DISEASE [None]
